FAERS Safety Report 20039935 (Version 1)
Quarter: 2021Q4

REPORT INFORMATION
  Report Type: Spontaneous
  Country: GB (occurrence: GB)
  Receive Date: 20211106
  Receipt Date: 20211106
  Transmission Date: 20220303
  Serious: Yes (Other)
  Sender: FDA-Public Use
  Company Number: None

PATIENT
  Sex: Female

DRUGS (1)
  1. TRIMETHOPRIM [Suspect]
     Active Substance: TRIMETHOPRIM
     Route: 065

REACTIONS (18)
  - Hallucination [Unknown]
  - Encephalitis [Unknown]
  - Haematuria [Unknown]
  - Nausea [Unknown]
  - Diarrhoea [Unknown]
  - Pyrexia [Unknown]
  - Vomiting [Unknown]
  - Photophobia [Unknown]
  - Nightmare [Unknown]
  - Ocular hyperaemia [Unknown]
  - Eye pain [Unknown]
  - Rash [Unknown]
  - Renal disorder [Unknown]
  - Abnormal loss of weight [Unknown]
  - Polyuria [Unknown]
  - Oedema [Recovered/Resolved]
  - Oedema peripheral [Recovered/Resolved]
  - Contraindicated product prescribed [Unknown]
